FAERS Safety Report 17597678 (Version 1)
Quarter: 2020Q1

REPORT INFORMATION
  Report Type: Spontaneous
  Country: JP (occurrence: JP)
  Receive Date: 20200330
  Receipt Date: 20200330
  Transmission Date: 20200409
  Serious: Yes (Hospitalization)
  Sender: FDA-Public Use
  Company Number: JP-ROCHE-2572825

PATIENT
  Age: 69 Year
  Sex: Male
  Weight: 66 kg

DRUGS (8)
  1. AMLODIPINE BESILATE [Concomitant]
     Active Substance: AMLODIPINE BESYLATE
     Dosage: DOSAGE IS UNCERTAIN.
     Route: 048
  2. TAMIFLU [Suspect]
     Active Substance: OSELTAMIVIR PHOSPHATE
     Indication: INFLUENZA
     Dosage: DOSAGE IS UNCERTAIN.
     Route: 048
     Dates: start: 20200214
  3. LANTHANUM CARBONATE. [Concomitant]
     Active Substance: LANTHANUM CARBONATE
     Dosage: DOSAGE IS UNCERTAIN.
     Route: 048
  4. LINAGLIPTIN [Concomitant]
     Active Substance: LINAGLIPTIN
     Dosage: DOSAGE IS UNCERTAIN.
     Route: 048
  5. CARVEDILOL. [Concomitant]
     Active Substance: CARVEDILOL
     Dosage: DOSAGE IS UNCERTAIN.
     Route: 065
  6. MITIGLINIDE CALCIUM [Concomitant]
     Active Substance: MITIGLINIDE CALCIUM ANHYDROUS
     Dosage: DOSAGE IS UNCERTAIN.
     Route: 048
  7. VOGLIBOSE [Concomitant]
     Active Substance: VOGLIBOSE
     Dosage: DOSAGE IS UNCERTAIN.
     Route: 048
  8. EVOCALCET [Concomitant]
     Active Substance: EVOCALCET
     Dosage: DOSAGE IS UNCERTAIN.
     Route: 048

REACTIONS (1)
  - Corona virus infection [Unknown]
